FAERS Safety Report 4687669-1 (Version None)
Quarter: 2005Q2

REPORT INFORMATION
  Report Type: 
  Country: None (occurrence: None)
  Receive Date: 20050608
  Receipt Date: 20050608
  Transmission Date: 20051028
  Serious: No
  Sender: FDA-Public Use
  Company Number: None

PATIENT
  Age: 57 Year
  Sex: Male
  Weight: 102.0593 kg

DRUGS (1)
  1. LITHIUM CARBONATE [Suspect]
     Dosage: IMPRINT ON LITHIUM CARBONATE ^A 270^

REACTIONS (8)
  - ACTIVITIES OF DAILY LIVING IMPAIRED [None]
  - BIPOLAR I DISORDER [None]
  - CONDITION AGGRAVATED [None]
  - DEPRESSION [None]
  - DRUG LEVEL DECREASED [None]
  - MOOD ALTERED [None]
  - PHARMACEUTICAL PRODUCT COMPLAINT [None]
  - SOMNOLENCE [None]
